FAERS Safety Report 26083936 (Version 1)
Quarter: 2025Q4

REPORT INFORMATION
  Report Type: Spontaneous
  Country: GB (occurrence: GB)
  Receive Date: 20251124
  Receipt Date: 20251124
  Transmission Date: 20260117
  Serious: Yes (Other)
  Sender: NOVO NORDISK
  Company Number: None

PATIENT
  Age: 52 Year
  Sex: Female
  Weight: 88 kg

DRUGS (2)
  1. WEGOVY [Interacting]
     Active Substance: SEMAGLUTIDE
     Indication: Overweight
     Dosage: 1.7MG
  2. HYDROXYCHLOROQUINE [Interacting]
     Active Substance: HYDROXYCHLOROQUINE
     Indication: Arthritis
     Dosage: UNK

REACTIONS (1)
  - Potentiating drug interaction [Recovered/Resolved]
